FAERS Safety Report 15761028 (Version 2)
Quarter: 2019Q1

REPORT INFORMATION
  Report Type: Spontaneous
  Country: US (occurrence: US)
  Receive Date: 20181226
  Receipt Date: 20190108
  Transmission Date: 20190417
  Serious: No
  Sender: FDA-Public Use
  Company Number: US-PFIZER INC-2018522382

PATIENT
  Age: 48 Year
  Sex: Female

DRUGS (6)
  1. APREMILAST [Suspect]
     Active Substance: APREMILAST
     Indication: SARCOIDOSIS
     Dosage: 30 MG, 2X/DAY
  2. MINOCYCLINE [Suspect]
     Active Substance: MINOCYCLINE\MINOCYCLINE HYDROCHLORIDE
     Indication: SARCOIDOSIS
     Dosage: 100 MG, 2X/DAY
  3. HYDROXYCHLOROQUINE [Suspect]
     Active Substance: HYDROXYCHLOROQUINE
     Indication: SARCOIDOSIS
     Dosage: 200 MG, 2X/DAY
  4. TACROLIMUS. [Suspect]
     Active Substance: TACROLIMUS
     Indication: SARCOIDOSIS
     Dosage: 0.085 MG/KG, DAILY(0.085 MG PER KILOGRAM0
     Route: 048
  5. METHOTREXATE SODIUM. [Suspect]
     Active Substance: METHOTREXATE SODIUM
     Dosage: UNK UNK, WEEKLY (15 TO 20 MG)
  6. ADALIMUMAB [Suspect]
     Active Substance: ADALIMUMAB
     Indication: SARCOIDOSIS
     Dosage: 40 MG, UNK (40 MG EVERY OTHER)

REACTIONS (1)
  - Drug ineffective [Unknown]
